FAERS Safety Report 19701368 (Version 1)
Quarter: 2021Q3

REPORT INFORMATION
  Report Type: Spontaneous
  Country: BG (occurrence: BG)
  Receive Date: 20210813
  Receipt Date: 20210813
  Transmission Date: 20211014
  Serious: Yes (Hospitalization, Other)
  Sender: FDA-Public Use
  Company Number: BG-JNJFOC-20210814081

PATIENT
  Age: 40 Year
  Sex: Female

DRUGS (1)
  1. REMICADE [Suspect]
     Active Substance: INFLIXIMAB
     Indication: PRODUCT USED FOR UNKNOWN INDICATION
     Route: 042

REACTIONS (6)
  - Headache [Recovered/Resolved]
  - Respiratory failure [Unknown]
  - Tuberculosis [Unknown]
  - Hepatic neoplasm [Unknown]
  - Pyrexia [Recovered/Resolved]
  - Splenic abscess [Unknown]

NARRATIVE: CASE EVENT DATE: 20210707
